FAERS Safety Report 19127084 (Version 1)
Quarter: 2021Q2

REPORT INFORMATION
  Report Type: Spontaneous
  Country: US (occurrence: US)
  Receive Date: 20210412
  Receipt Date: 20210412
  Transmission Date: 20210717
  Serious: Yes (Hospitalization)
  Sender: FDA-Public Use
  Company Number: None

PATIENT
  Age: 50 Year
  Sex: Female

DRUGS (25)
  1. DOXYCYCL HYC [Concomitant]
  2. PROGESTERONE. [Concomitant]
     Active Substance: PROGESTERONE
  3. METHYLPRED [Concomitant]
     Active Substance: METHYLPREDNISOLONE
  4. ROPINIROLE. [Concomitant]
     Active Substance: ROPINIROLE
  5. SMZ/TMP DS [Concomitant]
     Active Substance: SULFAMETHOXAZOLE\TRIMETHOPRIM
  6. BREO ELLIPTA [Concomitant]
     Active Substance: FLUTICASONE FUROATE\VILANTEROL TRIFENATATE
  7. TOPIRAMATE. [Concomitant]
     Active Substance: TOPIRAMATE
  8. ZOLPIDEM [Concomitant]
     Active Substance: ZOLPIDEM TARTRATE
  9. GILENYA [Suspect]
     Active Substance: FINGOLIMOD HYDROCHLORIDE
     Indication: MULTIPLE SCLEROSIS
     Route: 048
     Dates: start: 20150917
  10. DEXAMETHASONE. [Concomitant]
     Active Substance: DEXAMETHASONE
  11. FUROSEMIDE. [Concomitant]
     Active Substance: FUROSEMIDE
  12. AZITHROMYCIN ANHYDROUS. [Concomitant]
     Active Substance: AZITHROMYCIN ANHYDROUS
  13. VENLAFAXINE [Concomitant]
     Active Substance: VENLAFAXINE HYDROCHLORIDE
  14. ALBUTEROL HFA [Concomitant]
     Active Substance: ALBUTEROL SULFATE
  15. MISOPROSTOL. [Concomitant]
     Active Substance: MISOPROSTOL
  16. MODAFINL [Concomitant]
  17. ACEBUTOLOL [Concomitant]
     Active Substance: ACEBUTOLOL
  18. HYDROCO/APAP [Concomitant]
     Active Substance: ACETAMINOPHEN\HYDROCODONE
  19. METRONIDAZOL [Concomitant]
     Active Substance: METRONIDAZOLE
  20. UBRELVY [Concomitant]
     Active Substance: UBROGEPANT
  21. ALPRAZOLAM. [Concomitant]
     Active Substance: ALPRAZOLAM
  22. AMLODIPINE [Concomitant]
     Active Substance: AMLODIPINE BESYLATE
  23. DULOXETINE. [Concomitant]
     Active Substance: DULOXETINE
  24. FLUITCASONE [Concomitant]
  25. PREDNISONE. [Concomitant]
     Active Substance: PREDNISONE

REACTIONS (1)
  - COVID-19 [None]

NARRATIVE: CASE EVENT DATE: 20210404
